FAERS Safety Report 4367754-4 (Version None)
Quarter: 2004Q2

REPORT INFORMATION
  Report Type: 
  Country: None (occurrence: None)
  Receive Date: 20040601
  Receipt Date: 20040517
  Transmission Date: 20050107
  Serious: Yes (Hospitalization)
  Sender: FDA-Public Use
  Company Number: PHEH2004US05404

PATIENT
  Age: 55 Year
  Sex: Female

DRUGS (17)
  1. ZELNORM [Suspect]
     Indication: IRRITABLE BOWEL SYNDROME
     Dosage: 6 MG, BID
     Route: 048
     Dates: start: 20031001, end: 20040413
  2. ALTACE [Concomitant]
  3. HYDROCHLOROTHIAZIDE [Concomitant]
  4. ATENOLOL [Concomitant]
  5. CLONIDINE HCL [Concomitant]
  6. LIPITOR [Concomitant]
  7. METHOTREXATE [Concomitant]
  8. PREDNISONE [Concomitant]
  9. PROVIGIL [Concomitant]
  10. FOLIC ACID [Concomitant]
  11. DETROL - SLOW RELEASE [Concomitant]
  12. EFFEXOR [Concomitant]
  13. SALAGEN [Concomitant]
  14. ZYPREXA [Concomitant]
  15. INSULIN [Concomitant]
  16. FORTEO [Concomitant]
  17. CELEBREX [Concomitant]

REACTIONS (10)
  - ABDOMINAL DISTENSION [None]
  - ABDOMINAL PAIN [None]
  - ABDOMINAL TENDERNESS [None]
  - ANAEMIA [None]
  - BOWEL SOUNDS ABNORMAL [None]
  - COLECTOMY PARTIAL [None]
  - INTESTINAL ANASTOMOSIS [None]
  - NAUSEA [None]
  - VOLVULUS OF BOWEL [None]
  - X-RAY GASTROINTESTINAL TRACT ABNORMAL [None]
